FAERS Safety Report 4485039-2 (Version None)
Quarter: 2004Q4

REPORT INFORMATION
  Report Type: 
  Country: None (occurrence: None)
  Receive Date: 20041026
  Receipt Date: 20040927
  Transmission Date: 20050328
  Serious: Yes (Other)
  Sender: FDA-Public Use
  Company Number: PHBS2004JP12965

PATIENT
  Age: 35 Year
  Sex: Female

DRUGS (2)
  1. LAMISIL [Suspect]
     Indication: TINEA PEDIS
     Dosage: 125 MG/DAY
     Route: 048
     Dates: start: 20040916, end: 20040923
  2. MYCOSPOR [Concomitant]
     Dosage: 10 G
     Route: 061

REACTIONS (11)
  - ABDOMINAL PAIN [None]
  - ARTHRALGIA [None]
  - BOWEL SOUNDS ABNORMAL [None]
  - DIARRHOEA [None]
  - DIZZINESS [None]
  - ENTEROCOLITIS [None]
  - FLATULENCE [None]
  - MELAENA [None]
  - MYALGIA [None]
  - PYREXIA [None]
  - WHITE BLOOD CELL COUNT INCREASED [None]
